FAERS Safety Report 20455353 (Version 2)
Quarter: 2022Q2

REPORT INFORMATION
  Report Type: Spontaneous
  Country: CA (occurrence: CA)
  Receive Date: 20220210
  Receipt Date: 20220629
  Transmission Date: 20220720
  Serious: Yes (Hospitalization, Congenital Anomaly, Other)
  Sender: FDA-Public Use
  Company Number: CA-TEVA-2022-CA-2004391

PATIENT
  Sex: Male

DRUGS (7)
  1. INDOMETHACIN [Suspect]
     Active Substance: INDOMETHACIN
     Indication: Ductus arteriosus stenosis foetal
     Route: 064
  2. INDOMETHACIN [Suspect]
     Active Substance: INDOMETHACIN
     Indication: Product used for unknown indication
     Dosage: 100 MILLIGRAM DAILY;
     Route: 065
  3. INDOMETHACIN [Suspect]
     Active Substance: INDOMETHACIN
     Indication: Patent ductus arteriosus
     Dosage: 75 MILLIGRAM DAILY;
     Route: 064
  4. INDOMETHACIN [Suspect]
     Active Substance: INDOMETHACIN
     Dosage: 100 MILLIGRAM DAILY;
     Route: 064
  5. INDOMETHACIN [Suspect]
     Active Substance: INDOMETHACIN
     Dosage: 50 MILLIGRAM DAILY;
     Route: 064
  6. INDOMETHACIN [Suspect]
     Active Substance: INDOMETHACIN
     Route: 064
  7. IBUPROFEN [Suspect]
     Active Substance: IBUPROFEN
     Indication: Patent ductus arteriosus
     Dosage: 1600 MILLIGRAM DAILY;
     Route: 064

REACTIONS (5)
  - Amniotic fluid volume decreased [Recovered/Resolved]
  - Ductus arteriosus premature closure [Recovered/Resolved]
  - Foetal exposure during pregnancy [Recovered/Resolved]
  - Neonatal hypoxia [Recovered/Resolved]
  - Off label use [Recovered/Resolved]
